FAERS Safety Report 23988944 (Version 1)
Quarter: 2024Q2

REPORT INFORMATION
  Report Type: Spontaneous
  Country: US (occurrence: US)
  Receive Date: 20240619
  Receipt Date: 20240619
  Transmission Date: 20240716
  Serious: No
  Sender: FDA-Public Use
  Company Number: US-AMGEN-USASP2024116953

PATIENT
  Age: 73 Year
  Sex: Female

DRUGS (2)
  1. ENBREL [Suspect]
     Active Substance: BENZYL ALCOHOL\ETANERCEPT
     Indication: Rheumatoid arthritis
     Dosage: 25 MILLIGRAM, QWK
     Route: 065
  2. HUMIRA [Concomitant]
     Active Substance: ADALIMUMAB
     Route: 065

REACTIONS (7)
  - Localised infection [Recovered/Resolved]
  - Wrong technique in product usage process [Unknown]
  - Device difficult to use [Unknown]
  - Off label use [Unknown]
  - Injury associated with device [Unknown]
  - Drug dose omission by device [Unknown]
  - Allergic cough [Unknown]

NARRATIVE: CASE EVENT DATE: 20240610
